FAERS Safety Report 18446208 (Version 1)
Quarter: 2020Q4

REPORT INFORMATION
  Report Type: Spontaneous
  Country: US (occurrence: US)
  Receive Date: 20201029
  Receipt Date: 20201029
  Transmission Date: 20210114
  Serious: Yes (Hospitalization)
  Sender: FDA-Public Use
  Company Number: None

PATIENT
  Sex: Female

DRUGS (11)
  1. DULOXETINE. [Concomitant]
     Active Substance: DULOXETINE
  2. LEVOTHYROXIN [Concomitant]
     Active Substance: LEVOTHYROXINE
  3. RIZATRIPTAN. [Concomitant]
     Active Substance: RIZATRIPTAN
  4. MELOXICAM. [Concomitant]
     Active Substance: MELOXICAM
  5. FOLIC ACID. [Concomitant]
     Active Substance: FOLIC ACID
  6. GABAPENTIN. [Concomitant]
     Active Substance: GABAPENTIN
  7. RASUVO [Concomitant]
     Active Substance: METHOTREXATE SODIUM
  8. ROPINIROLE. [Concomitant]
     Active Substance: ROPINIROLE
  9. TRAMADOL HCL [Concomitant]
     Active Substance: TRAMADOL HYDROCHLORIDE
  10. HUMIRA [Suspect]
     Active Substance: ADALIMUMAB
     Indication: RHEUMATOID ARTHRITIS
     Route: 058
     Dates: start: 20200429
  11. HYDROCHLOROT [Concomitant]
     Active Substance: HYDROCHLOROTHIAZIDE

REACTIONS (1)
  - Hysterectomy [None]
